FAERS Safety Report 6936142-6 (Version None)
Quarter: 2010Q3

REPORT INFORMATION
  Report Type: 
  Country: None (occurrence: None)
  Receive Date: 20100819
  Receipt Date: 20100819
  Transmission Date: 20110219
  Serious: Yes (Other)
  Sender: FDA-Public Use
  Company Number: None

PATIENT
  Sex: Male
  Weight: 112.4921 kg

DRUGS (2)
  1. CLINDAMYCIN HCL [Suspect]
     Indication: ANTIBIOTIC THERAPY
     Dosage: 300 MG 1 EVERY 6-HOURS
     Dates: start: 20100815, end: 20100824
  2. CLINDAMYCIN HCL [Suspect]
     Indication: WOUND
     Dosage: 300 MG 1 EVERY 6-HOURS
     Dates: start: 20100815, end: 20100824

REACTIONS (2)
  - CHEST PAIN [None]
  - DYSPEPSIA [None]
